FAERS Safety Report 8930518 (Version 3)
Quarter: 2018Q4

REPORT INFORMATION
  Report Type: Spontaneous
  Country: NL (occurrence: NL)
  Receive Date: 20121128
  Receipt Date: 20181130
  Transmission Date: 20190205
  Serious: Yes (Hospitalization, Other)
  Sender: FDA-Public Use
  Company Number: NL-ALEXION-A201202239

PATIENT
  Age: 42 Year
  Sex: Male

DRUGS (3)
  1. SOLIRIS [Suspect]
     Active Substance: ECULIZUMAB
     Dosage: 900 MG, UNK
     Route: 042
     Dates: start: 20080618
  2. FOLIC ACID. [Concomitant]
     Active Substance: FOLIC ACID
     Indication: BONE MARROW FAILURE
     Dosage: 5 MG, QD
     Route: 048
  3. SOLIRIS [Suspect]
     Active Substance: ECULIZUMAB
     Indication: PAROXYSMAL NOCTURNAL HAEMOGLOBINURIA
     Dosage: 600 MG, UNK
     Route: 042
     Dates: start: 20080522, end: 20080618

REACTIONS (4)
  - Gonorrhoea [Recovered/Resolved]
  - Rash [Unknown]
  - Pyrexia [Unknown]
  - Bacterial sepsis [Recovered/Resolved]

NARRATIVE: CASE EVENT DATE: 20121020
